FAERS Safety Report 16684374 (Version 2)
Quarter: 2019Q3

REPORT INFORMATION
  Report Type: Spontaneous
  Country: DE (occurrence: DE)
  Receive Date: 20190808
  Receipt Date: 20190814
  Transmission Date: 20191004
  Serious: Yes (Hospitalization)
  Sender: FDA-Public Use
  Company Number: DE-ASTRAZENECA-2019SF09912

PATIENT
  Sex: Male

DRUGS (3)
  1. SEROQUEL XR [Suspect]
     Active Substance: QUETIAPINE FUMARATE
     Indication: DEPRESSION
     Route: 048
  2. VENLAFAXINE [Concomitant]
     Active Substance: VENLAFAXINE HYDROCHLORIDE
  3. LITHIUM. [Concomitant]
     Active Substance: LITHIUM

REACTIONS (7)
  - Euthyroid sick syndrome [Unknown]
  - Off label use [Unknown]
  - Tri-iodothyronine decreased [Unknown]
  - Product use in unapproved indication [Unknown]
  - Depressive symptom [Unknown]
  - Hypopituitarism [Unknown]
  - Thyroxine decreased [Unknown]
